FAERS Safety Report 4988634-7 (Version None)
Quarter: 2006Q2

REPORT INFORMATION
  Report Type: 
  Country: None (occurrence: None)
  Receive Date: 20060426
  Receipt Date: 20060412
  Transmission Date: 20061013
  Serious: Yes (Death, Other)
  Sender: FDA-Public Use
  Company Number: JP200604002296

PATIENT
  Age: 70 Year
  Sex: Female

DRUGS (4)
  1. GEMZAR [Suspect]
     Indication: GASTRIC CANCER RECURRENT
     Dosage: SEE INTRAVENOUS
     Route: 042
     Dates: start: 20040101, end: 20040101
  2. GEMZAR [Suspect]
     Indication: GASTRIC CANCER RECURRENT
     Dosage: SEE INTRAVENOUS
     Route: 042
     Dates: start: 20040101
  3. CISPLATIN [Concomitant]
  4. TS 1 /JPN/ (GIMERACIL, OTERACIL POTASSIUM, TEGAFUR) [Concomitant]

REACTIONS (7)
  - CANCER PAIN [None]
  - CARBOHYDRATE ANTIGEN 19-9 INCREASED [None]
  - CONDITION AGGRAVATED [None]
  - DISSEMINATED INTRAVASCULAR COAGULATION [None]
  - METASTASES TO BONE MARROW [None]
  - METASTATIC GASTRIC CANCER [None]
  - NAUSEA [None]
